FAERS Safety Report 4428859-2 (Version None)
Quarter: 2004Q3

REPORT INFORMATION
  Report Type: 
  Country: None (occurrence: None)
  Receive Date: 20040813
  Receipt Date: 20040804
  Transmission Date: 20050211
  Serious: Yes (Life-Threatening, Hospitalization, Other)
  Sender: FDA-Public Use
  Company Number: HQWYE841204AUG04

PATIENT
  Age: 42 Year
  Sex: Female

DRUGS (1)
  1. AMIODARONE HCL [Suspect]

REACTIONS (2)
  - BRADYPNOEA [None]
  - HYPOTENSION [None]
